FAERS Safety Report 13082925 (Version 1)
Quarter: 2017Q1

REPORT INFORMATION
  Report Type: Report from Study
  Country: US (occurrence: US)
  Receive Date: 20170103
  Receipt Date: 20170103
  Transmission Date: 20170428
  Serious: Yes (Other)
  Sender: FDA-Public Use
  Company Number: US-AMGEN-USASL2016184911

PATIENT
  Age: 63 Year
  Sex: Male

DRUGS (1)
  1. REPATHA [Suspect]
     Active Substance: EVOLOCUMAB
     Indication: BLOOD CHOLESTEROL INCREASED
     Dosage: UNK, EVERY 1 OR 2 WEEKS
     Route: 065
     Dates: start: 2016, end: 2016

REACTIONS (8)
  - Sinus disorder [Unknown]
  - Ear tube insertion [Unknown]
  - Oropharyngeal pain [Unknown]
  - Aphonia [Unknown]
  - Urinary tract infection [Unknown]
  - Diverticulitis [Not Recovered/Not Resolved]
  - Drug interaction [Unknown]
  - Malaise [Unknown]

NARRATIVE: CASE EVENT DATE: 2016
